FAERS Safety Report 6158535-X (Version None)
Quarter: 2009Q2

REPORT INFORMATION
  Report Type: 
  Country: None (occurrence: None)
  Receive Date: 20090417
  Receipt Date: 20090414
  Transmission Date: 20091009
  Serious: Yes (Death, Life-Threatening, Hospitalization, Disabling)
  Sender: FDA-Public Use
  Company Number: PHHY2009DK13903

PATIENT
  Sex: Female
  Weight: 43 kg

DRUGS (26)
  1. SANDIMMUNE [Suspect]
     Indication: LUNG TRANSPLANT
     Dosage: 150 MG/DAY
     Route: 048
     Dates: start: 20061001, end: 20090112
  2. IMUREL [Concomitant]
     Dosage: 25 MG, QD
     Dates: start: 20080821
  3. TACROLIMUS [Concomitant]
     Dosage: UNK
  4. PREDNISOLONE [Concomitant]
     Dosage: 20 MG, UNK
  5. VILAN [Concomitant]
     Dosage: 5 MG 6 TIMES DAILY
     Route: 048
     Dates: start: 20090218
  6. DELEPSINE - SLOW RELEASE [Concomitant]
     Dosage: 250 MG, BID
     Route: 048
     Dates: start: 20090313
  7. ZOPICLONE [Concomitant]
     Dosage: 7.5 MG, QD
     Dates: start: 20090108
  8. INSULATARD [Concomitant]
     Dosage: 28 IU, QD
     Route: 058
  9. SULFAMETOXAZOL MED TRIMETOPRIM [Concomitant]
     Dosage: 1 DF, QD
     Dates: start: 20080417
  10. PANTOPRAZOLE SODIUM [Concomitant]
     Dosage: 40 MG, QD
     Dates: start: 20080418
  11. STRUCTOKABIVEN ELEKTROLYTFRI [Concomitant]
     Dosage: UNK
     Route: 042
     Dates: start: 20090312
  12. DIPEPTIVEN [Concomitant]
     Dosage: 100 ML, QD
     Dates: start: 20090312
  13. VANCOMYCIN HCL [Concomitant]
     Dosage: 1000 MG, BID
     Dates: start: 20090311
  14. ACTRAPID NOVOLET [Concomitant]
     Dosage: UNK
     Dates: start: 20081222
  15. CIPROFLOXACIN [Concomitant]
     Dosage: 500 MG, BID
     Dates: start: 20090203
  16. PINEX [Concomitant]
     Dosage: 1000 MG, QID
  17. FRAGMIN [Concomitant]
     Dosage: UNK
     Dates: start: 20090212
  18. MIRTAZAPINE [Concomitant]
     Dosage: UNK
     Dates: start: 20090119
  19. KALEORID [Concomitant]
     Dosage: 750 MG, BID
  20. VFEND [Concomitant]
     Dosage: 200 MG, BID
     Dates: start: 20081223
  21. DIURAL [Concomitant]
     Dosage: 40 MG, BID
     Dates: start: 20080812
  22. ZOFRAN [Concomitant]
     Dosage: UNK
     Dates: start: 20090311
  23. PANCREASE MICROTABS [Concomitant]
     Dosage: UNK
     Dates: start: 20080417
  24. MORFIN [Concomitant]
  25. MIDAZOLAM HCL [Concomitant]
     Dosage: 1.25 MG X 6 TIMES
     Dates: start: 20090206
  26. NULYTELY [Concomitant]
     Dosage: 2 DF, UNK

REACTIONS (2)
  - LUNG TRANSPLANT REJECTION [None]
  - QUADRIPLEGIA [None]
